FAERS Safety Report 14302775 (Version 1)
Quarter: 2017Q4

REPORT INFORMATION
  Report Type: Spontaneous
  Country: CA (occurrence: US)
  Receive Date: 20171219
  Receipt Date: 20171219
  Transmission Date: 20180321
  Serious: Yes (Hospitalization)
  Sender: FDA-Public Use
  Company Number: None

PATIENT
  Age: 3 Year
  Sex: Female
  Weight: 13.7 kg

DRUGS (7)
  1. CYTARABINE. [Suspect]
     Active Substance: CYTARABINE
     Dates: end: 20170913
  2. ONCASPAR [Suspect]
     Active Substance: PEGASPARGASE
     Dates: end: 201609
  3. DEXAMETHASONE. [Suspect]
     Active Substance: DEXAMETHASONE
     Dates: end: 20171011
  4. VINCRISTINE SULFATE. [Suspect]
     Active Substance: VINCRISTINE SULFATE
     Dates: end: 20171018
  5. MERCAPTOPURINE. [Suspect]
     Active Substance: MERCAPTOPURINE
     Dates: end: 20171104
  6. METHOTREXATE. [Suspect]
     Active Substance: METHOTREXATE
     Dates: end: 20171101
  7. LEUCOVORIN CALCIUM. [Suspect]
     Active Substance: LEUCOVORIN CALCIUM
     Dates: end: 20171104

REACTIONS (11)
  - Acute kidney injury [None]
  - Dialysis [None]
  - Tachycardia [None]
  - Febrile neutropenia [None]
  - Mucosal infection [None]
  - Lung infection [None]
  - Stomatitis [None]
  - Depressed level of consciousness [None]
  - Hyponatraemia [None]
  - Rash [None]
  - Sepsis [None]

NARRATIVE: CASE EVENT DATE: 20171101
